FAERS Safety Report 16483060 (Version 1)
Quarter: 2019Q2

REPORT INFORMATION
  Report Type: Spontaneous
  Country: US (occurrence: US)
  Receive Date: 20190515
  Receipt Date: 20190515
  Transmission Date: 20190711
  Serious: Yes (Hospitalization)
  Sender: FDA-Public Use
  Company Number: None

PATIENT
  Age: 29 Year
  Sex: Male
  Weight: 70.5 kg

DRUGS (3)
  1. TAXOL [Suspect]
     Active Substance: PACLITAXEL
     Dates: end: 20190423
  2. IFOSFAMIDE. [Suspect]
     Active Substance: IFOSFAMIDE
     Dates: end: 20190427
  3. CISPLATIN. [Suspect]
     Active Substance: CISPLATIN
     Dates: end: 20190427

REACTIONS (2)
  - Renal disorder [None]
  - Therapy cessation [None]

NARRATIVE: CASE EVENT DATE: 20190514
